FAERS Safety Report 9816725 (Version 1)
Quarter: 2014Q1

REPORT INFORMATION
  Report Type: Spontaneous
  Country: US (occurrence: US)
  Receive Date: 20140114
  Receipt Date: 20140114
  Transmission Date: 20141002
  Serious: Yes (Death)
  Sender: FDA-Public Use
  Company Number: US-PFIZER INC-2014007545

PATIENT
  Age: 48 Year
  Sex: Female

DRUGS (6)
  1. MORPHINE SULFATE [Suspect]
  2. OXYCODONE HYDROCHLORIDE [Suspect]
  3. ALPRAZOLAM [Suspect]
  4. METHADONE [Suspect]
  5. PHENTERMINE [Suspect]
  6. CITALOPRAM [Suspect]

REACTIONS (3)
  - Completed suicide [Fatal]
  - Cardiac arrest [Fatal]
  - Respiratory arrest [Fatal]
